FAERS Safety Report 5242887-9 (Version None)
Quarter: 2007Q1

REPORT INFORMATION
  Report Type: 
  Country: None (occurrence: None)
  Receive Date: 20070221
  Receipt Date: 20070208
  Transmission Date: 20070707
  Serious: Yes (Hospitalization)
  Sender: FDA-Public Use
  Company Number: DE-ELI_LILLY_AND_COMPANY-DE200702001823

PATIENT
  Age: 64 Year
  Sex: Female
  Weight: 71 kg

DRUGS (20)
  1. TERIPARATIDE [Suspect]
     Indication: OSTEOPOROSIS
     Dosage: UNK, DAILY (1/D)
     Route: 058
     Dates: start: 20041228
  2. LOESCALCON [Concomitant]
     Indication: OSTEOPOROSIS
     Dosage: 1000 MG, UNK
     Dates: start: 20041124
  3. DEKRISTOL [Concomitant]
     Indication: OSTEOPOROSIS
     Dosage: 800 IU, UNK
     Dates: start: 20050110
  4. THEOPHYLLINE [Concomitant]
     Dates: start: 20000101
  5. THYRONAJOD [Concomitant]
     Dates: start: 20000101
  6. TIMONIL [Concomitant]
     Dates: start: 19750101
  7. NEURONTIN [Concomitant]
     Dates: start: 19750101
  8. BERODUAL [Concomitant]
     Dates: start: 20000101
  9. SPIRIVA [Concomitant]
     Dates: start: 20000101
  10. FORADIL [Concomitant]
     Dates: start: 20000101
  11. IBUFLAM [Concomitant]
     Dates: start: 20041123
  12. IBUPROFEN [Concomitant]
     Dates: start: 20050915
  13. DALMADORM [Concomitant]
     Dates: start: 20050829
  14. STANGYL [Concomitant]
     Dates: start: 20050801
  15. CELEBREX [Concomitant]
     Dates: start: 20050927
  16. VOLTAREN [Concomitant]
     Dosage: UNK, UNK
     Dates: start: 20050927
  17. PARACODIN N DROPS [Concomitant]
     Dates: start: 20050830
  18. ALLOPURINOL SODIUM [Concomitant]
     Dates: start: 20050830
  19. *PLACEBO [Suspect]
     Indication: OSTEOPOROSIS
     Dosage: UNK, DAILY (1/D)
     Route: 048
     Dates: start: 20041228
  20. OMEPRAZOLE [Concomitant]
     Dates: start: 20050830

REACTIONS (1)
  - LUNG DISORDER [None]
